FAERS Safety Report 6298099-3 (Version None)
Quarter: 2009Q3

REPORT INFORMATION
  Report Type: 
  Country: None (occurrence: None)
  Receive Date: 20090804
  Receipt Date: 20090804
  Transmission Date: 20100115
  Serious: Yes (Other)
  Sender: FDA-Public Use
  Company Number: None

PATIENT
  Sex: Male
  Weight: 82.5547 kg

DRUGS (1)
  1. CIPROFLOXACIN 750 MG IVAX [Suspect]
     Indication: BRONCHITIS
     Dosage: 1 TABLET, TWICE A DAY, PO
     Route: 048
     Dates: start: 20090728, end: 20090731

REACTIONS (3)
  - BLISTER [None]
  - GENITAL DISORDER MALE [None]
  - GENITAL PAIN [None]
